FAERS Safety Report 11096389 (Version 1)
Quarter: 2015Q2

REPORT INFORMATION
  Report Type: Spontaneous
  Country: JP (occurrence: JP)
  Receive Date: 20150507
  Receipt Date: 20150507
  Transmission Date: 20150821
  Serious: Yes (Death, Hospitalization, Other)
  Sender: FDA-Public Use
  Company Number: JP-CIPLA LTD.-2015JP03515

PATIENT

DRUGS (2)
  1. GEMCITABINE [Suspect]
     Active Substance: GEMCITABINE\GEMCITABINE HYDROCHLORIDE
     Indication: PANCREATIC CARCINOMA
     Dosage: 56 COURSES ADMINISTERED IN 3.5 YEARS AND WAS DISCONTINUED
     Route: 065
  2. GEMCITABINE [Suspect]
     Active Substance: GEMCITABINE\GEMCITABINE HYDROCHLORIDE
     Dosage: GEMCITABINE WAS ADMINISTERED AGAIN
     Route: 065

REACTIONS (6)
  - Pyrexia [Unknown]
  - Metastases to liver [Unknown]
  - Death [Fatal]
  - Disease recurrence [Unknown]
  - Drug ineffective [Unknown]
  - Anaemia [Unknown]
